FAERS Safety Report 22287424 (Version 3)
Quarter: 2024Q3

REPORT INFORMATION
  Report Type: Report from Study
  Country: US (occurrence: US)
  Receive Date: 20230505
  Receipt Date: 20240828
  Transmission Date: 20241016
  Serious: No
  Sender: NOVARTIS
  Company Number: US-002147023-NVSC2023US101408

PATIENT
  Age: 56 Year
  Sex: Female
  Weight: 74.83 kg

DRUGS (2)
  1. ENTRESTO [Suspect]
     Active Substance: SACUBITRIL\VALSARTAN
     Indication: Product used for unknown indication
     Dosage: 49.51 MG, BID
     Route: 048
     Dates: start: 20221227
  2. TOPROL XL [Suspect]
     Active Substance: METOPROLOL SUCCINATE
     Indication: Product used for unknown indication
     Dosage: UNK
     Route: 065

REACTIONS (2)
  - Asthenia [Not Recovered/Not Resolved]
  - Urticaria [Unknown]

NARRATIVE: CASE EVENT DATE: 20230401
